FAERS Safety Report 24133694 (Version 9)
Quarter: 2025Q3

REPORT INFORMATION
  Report Type: Report from Study
  Country: JP (occurrence: JP)
  Receive Date: 20240724
  Receipt Date: 20250918
  Transmission Date: 20251021
  Serious: Yes (Death, Life-Threatening, Other)
  Sender: PFIZER
  Company Number: JP-PFIZER INC-PV202400087598

PATIENT
  Age: 78 Year
  Sex: Male
  Weight: 40.9 kg

DRUGS (8)
  1. ELRANATAMAB [Suspect]
     Active Substance: ELRANATAMAB
     Indication: Plasma cell myeloma refractory
     Dosage: 12 MG, 1X/DAY
     Route: 058
     Dates: start: 20240702, end: 20240702
  2. ELRANATAMAB [Suspect]
     Active Substance: ELRANATAMAB
     Dosage: 32 MG, 1X/DAY
     Route: 058
     Dates: start: 20240705, end: 20240705
  3. ELRANATAMAB [Suspect]
     Active Substance: ELRANATAMAB
     Dosage: 76 MG, 1X/DAY
     Route: 058
     Dates: start: 20240709, end: 20240709
  4. FEBUXOSTAT [Concomitant]
     Active Substance: FEBUXOSTAT
     Indication: Hyperuricaemia
  5. FEBUXOSTAT [Concomitant]
     Active Substance: FEBUXOSTAT
     Indication: Prophylaxis
  6. SULFAMETHOXAZOLE\TRIMETHOPRIM [Concomitant]
     Active Substance: SULFAMETHOXAZOLE\TRIMETHOPRIM
     Indication: Antifungal prophylaxis
     Dosage: 2 DF, 2X/WEEK
  7. ACYCLOVIR [Concomitant]
     Active Substance: ACYCLOVIR
     Indication: Prophylaxis
  8. LANSOPRAZOLE [Concomitant]
     Active Substance: LANSOPRAZOLE
     Indication: Prophylaxis against gastrointestinal ulcer

REACTIONS (7)
  - Respiratory failure [Fatal]
  - Full blood count decreased [Fatal]
  - Pneumonia [Fatal]
  - Plasma cell myeloma [Unknown]
  - Malignant neoplasm progression [Unknown]
  - Cytokine release syndrome [Recovered/Resolved]
  - Immune effector cell-associated neurotoxicity syndrome [Recovered/Resolved]

NARRATIVE: CASE EVENT DATE: 20240703
